FAERS Safety Report 20622884 (Version 15)
Quarter: 2022Q2

REPORT INFORMATION
  Report Type: Spontaneous
  Country: GB (occurrence: GB)
  Receive Date: 20220322
  Receipt Date: 20220628
  Transmission Date: 20220720
  Serious: Yes (Death, Life-Threatening, Hospitalization, Other)
  Sender: FDA-Public Use
  Company Number: GB-MYLANLABS-2020M1053246

PATIENT
  Age: 56 Year
  Sex: Male
  Weight: 92 kg

DRUGS (129)
  1. METHOTREXATE SODIUM [Suspect]
     Active Substance: METHOTREXATE SODIUM
     Indication: Rheumatoid arthritis
     Dosage: 17.5 MG, 1X/DAY
     Route: 065
     Dates: start: 20100917
  2. METHOTREXATE SODIUM [Suspect]
     Active Substance: METHOTREXATE SODIUM
     Dosage: 18 MG, WEEKLY
     Route: 065
     Dates: start: 20100917
  3. METHOTREXATE SODIUM [Suspect]
     Active Substance: METHOTREXATE SODIUM
     Dosage: 17.5 MG, WEEKLY
     Route: 065
     Dates: start: 20100917
  4. METHOTREXATE SODIUM [Suspect]
     Active Substance: METHOTREXATE SODIUM
     Dosage: UNKNOWN, WEEKLY, QW (AT 17.5, WEEKLY)
     Route: 065
     Dates: start: 20100917
  5. CIPROFLOXACIN HYDROCHLORIDE [Suspect]
     Active Substance: CIPROFLOXACIN HYDROCHLORIDE
     Indication: Rheumatoid arthritis
     Dosage: 1000 MG, 1X/DAY
     Route: 048
  6. CIPROFLOXACIN HYDROCHLORIDE [Suspect]
     Active Substance: CIPROFLOXACIN HYDROCHLORIDE
     Indication: Abdominal discomfort
     Dosage: 1000 MG, 1X/DAY
     Route: 065
     Dates: start: 20100917
  7. CIPROFLOXACIN HYDROCHLORIDE [Suspect]
     Active Substance: CIPROFLOXACIN HYDROCHLORIDE
     Indication: Depression
     Dosage: 1000 MG, 1X/DAY
     Route: 065
  8. CIPROFLOXACIN HYDROCHLORIDE [Suspect]
     Active Substance: CIPROFLOXACIN HYDROCHLORIDE
     Dosage: 1000 MG, 1X/DAY
     Route: 065
  9. CIPROFLOXACIN HYDROCHLORIDE [Suspect]
     Active Substance: CIPROFLOXACIN HYDROCHLORIDE
     Dosage: 1000 MG, UNK
     Route: 065
  10. ENBREL [Suspect]
     Active Substance: ETANERCEPT
     Indication: Rheumatoid arthritis
     Dosage: 50 MG, WEEKLY
     Route: 065
     Dates: start: 20100917
  11. ENBREL [Suspect]
     Active Substance: ETANERCEPT
     Dosage: 50 MG, WEEKLY
     Route: 065
     Dates: start: 20100917
  12. IRBESARTAN [Suspect]
     Active Substance: IRBESARTAN
     Indication: Abdominal discomfort
     Dosage: 150 MG, DAILY
     Route: 065
     Dates: start: 20100912
  13. IRBESARTAN [Suspect]
     Active Substance: IRBESARTAN
     Dosage: 150 MG, 1X/DAY
     Route: 065
     Dates: start: 20100917
  14. IRBESARTAN [Suspect]
     Active Substance: IRBESARTAN
     Dosage: 150 MG, 1X/DAY
     Route: 065
     Dates: start: 20100912
  15. TAMSULOSIN HYDROCHLORIDE [Suspect]
     Active Substance: TAMSULOSIN HYDROCHLORIDE
     Indication: Radiotherapy
     Dosage: 400 UG
     Route: 065
  16. TAMSULOSIN HYDROCHLORIDE [Suspect]
     Active Substance: TAMSULOSIN HYDROCHLORIDE
     Dosage: 8 MG
     Route: 048
     Dates: start: 20200521, end: 202005
  17. SIMVASTATIN [Suspect]
     Active Substance: SIMVASTATIN
     Dosage: 20 MG
     Route: 048
  18. SIMVASTATIN [Suspect]
     Active Substance: SIMVASTATIN
     Dosage: UNK
     Route: 048
  19. SIMVASTATIN [Suspect]
     Active Substance: SIMVASTATIN
     Dosage: 20 MG
     Route: 048
  20. SIMVASTATIN [Suspect]
     Active Substance: SIMVASTATIN
     Dosage: 400 UG
     Route: 048
  21. SIMVASTATIN [Suspect]
     Active Substance: SIMVASTATIN
     Dosage: UNK
     Route: 065
  22. SIMVASTATIN [Suspect]
     Active Substance: SIMVASTATIN
     Dosage: UNK
     Route: 048
  23. PHYLLOCONTIN [Suspect]
     Active Substance: AMINOPHYLLINE
     Dosage: 400 MG, DAILY
     Route: 065
     Dates: start: 20100917
  24. PHYLLOCONTIN [Suspect]
     Active Substance: AMINOPHYLLINE
     Dosage: 400 MG, 1X/DAY
     Route: 065
  25. CLOZARIL [Suspect]
     Active Substance: CLOZAPINE
     Indication: Schizophrenia
     Dosage: 400 MG
     Route: 048
     Dates: start: 20090403
  26. CLOZARIL [Suspect]
     Active Substance: CLOZAPINE
     Indication: Schizophrenia
     Dosage: 400 MG
     Route: 048
     Dates: start: 20200403
  27. CLOZARIL [Suspect]
     Active Substance: CLOZAPINE
     Dosage: 8 MILLIGRAM, ONCE A DAY(8 MG, QD),
     Route: 048
     Dates: start: 20200521, end: 202005
  28. CLOZARIL [Suspect]
     Active Substance: CLOZAPINE
     Dosage: 8 MG, 1X/DAY
     Route: 048
     Dates: start: 20200521, end: 202005
  29. CLOZARIL [Suspect]
     Active Substance: CLOZAPINE
     Dosage: 400 MG
     Route: 048
     Dates: start: 20090403
  30. CLOZARIL [Suspect]
     Active Substance: CLOZAPINE
     Dosage: 400 MG
     Route: 048
     Dates: start: 20200403
  31. CLOZARIL [Suspect]
     Active Substance: CLOZAPINE
     Dosage: 40 MG, 1X/DAY
     Route: 048
  32. CLOZARIL [Suspect]
     Active Substance: CLOZAPINE
     Dosage: 8 MG, 1X/DAY
     Route: 048
     Dates: start: 202005
  33. CLOZARIL [Suspect]
     Active Substance: CLOZAPINE
     Dosage: 20 MG, 2X/DAY
     Route: 048
  34. CLOZARIL [Suspect]
     Active Substance: CLOZAPINE
     Dosage: 400 MG
     Route: 048
     Dates: start: 20200403
  35. CLOZARIL [Suspect]
     Active Substance: CLOZAPINE
     Dosage: UNK
     Route: 048
     Dates: start: 20090403
  36. CLOZARIL [Suspect]
     Active Substance: CLOZAPINE
     Dosage: 400 MG, 1X/DAY
     Route: 048
     Dates: start: 20090403
  37. CLOZARIL [Suspect]
     Active Substance: CLOZAPINE
     Dosage: 40 MG
     Route: 048
  38. FOLIC ACID [Suspect]
     Active Substance: FOLIC ACID
     Dosage: 5 MG
     Route: 048
  39. FOLIC ACID [Suspect]
     Active Substance: FOLIC ACID
     Dosage: 5 MG, 1X/DAY
     Route: 048
  40. FOLIC ACID [Suspect]
     Active Substance: FOLIC ACID
     Dosage: 5 MG
     Route: 065
  41. FOLIC ACID [Suspect]
     Active Substance: FOLIC ACID
     Dosage: 5 MG, 1X/DAY
     Route: 048
  42. OMEPRAZOLE [Suspect]
     Active Substance: OMEPRAZOLE
     Indication: Abdominal discomfort
     Dosage: 20 MG, 2X/DAY
     Route: 065
  43. OMEPRAZOLE [Suspect]
     Active Substance: OMEPRAZOLE
     Dosage: 24 MG, 1X/DAY
     Route: 003
  44. OMEPRAZOLE [Suspect]
     Active Substance: OMEPRAZOLE
     Dosage: 20 MG, 2X/DAY
     Route: 065
  45. OMEPRAZOLE [Suspect]
     Active Substance: OMEPRAZOLE
     Dosage: 20 MG, 2X/DAY
     Route: 065
     Dates: start: 20100917
  46. OMEPRAZOLE [Suspect]
     Active Substance: OMEPRAZOLE
     Dosage: 20 MG, 2X/DAY
     Route: 048
  47. OMEPRAZOLE [Suspect]
     Active Substance: OMEPRAZOLE
     Dosage: 24 MG, 2X/DAY
     Route: 048
  48. OMEPRAZOLE [Suspect]
     Active Substance: OMEPRAZOLE
     Dosage: 20 MG, Q12H
     Route: 048
  49. OMEPRAZOLE [Suspect]
     Active Substance: OMEPRAZOLE
     Dosage: 12 MG, BID
     Route: 048
  50. OMEPRAZOLE [Suspect]
     Active Substance: OMEPRAZOLE
     Dosage: 12 MG, Q12H
     Route: 048
  51. OMEPRAZOLE [Suspect]
     Active Substance: OMEPRAZOLE
     Dosage: 400 MG
     Route: 048
  52. OMEPRAZOLE [Suspect]
     Active Substance: OMEPRAZOLE
     Dosage: 20 MG, BID
     Route: 065
  53. OMEPRAZOLE [Suspect]
     Active Substance: OMEPRAZOLE
     Dosage: 400 UG
     Route: 065
  54. OMEPRAZOLE [Suspect]
     Active Substance: OMEPRAZOLE
     Dosage: 20 MG, 1X/DAY
     Route: 048
  55. OMEPRAZOLE [Suspect]
     Active Substance: OMEPRAZOLE
     Dosage: 20 MG, 1X/DAY
     Route: 065
  56. OMEPRAZOLE [Suspect]
     Active Substance: OMEPRAZOLE
     Dosage: 20 MG, 2X/DAY
     Route: 048
  57. OMEPRAZOLE [Suspect]
     Active Substance: OMEPRAZOLE
     Dosage: 20 MG, 2X/DAY
     Route: 065
     Dates: start: 20100917
  58. OMEPRAZOLE [Suspect]
     Active Substance: OMEPRAZOLE
     Dosage: 20 MG, 2X/DAY
     Route: 048
  59. OMEPRAZOLE [Suspect]
     Active Substance: OMEPRAZOLE
     Dosage: 400 UG
     Route: 065
  60. OMEPRAZOLE [Suspect]
     Active Substance: OMEPRAZOLE
     Indication: Abdominal discomfort
     Dosage: 400 UG
     Route: 065
  61. OMEPRAZOLE [Suspect]
     Active Substance: OMEPRAZOLE
     Dosage: 20 MG, 2X/DAY
     Route: 065
  62. OMEPRAZOLE [Suspect]
     Active Substance: OMEPRAZOLE
     Dosage: 20 MG, 2X/DAY
     Route: 065
     Dates: start: 20100917
  63. OMEPRAZOLE [Suspect]
     Active Substance: OMEPRAZOLE
     Dosage: 400 MG
     Route: 048
  64. OMEPRAZOLE [Suspect]
     Active Substance: OMEPRAZOLE
     Dosage: 20 MG, 2X/DAY
     Route: 048
  65. OMEPRAZOLE [Suspect]
     Active Substance: OMEPRAZOLE
     Dosage: 20 MG, 1X/DAY
     Route: 048
  66. OMEPRAZOLE [Suspect]
     Active Substance: OMEPRAZOLE
     Dosage: 20 MG, 2X/DAY
     Route: 048
  67. OMEPRAZOLE [Suspect]
     Active Substance: OMEPRAZOLE
     Dosage: 12 MG, 2X/DAY
     Route: 048
  68. OMEPRAZOLE [Suspect]
     Active Substance: OMEPRAZOLE
     Dosage: 20 MG, BID
     Route: 048
  69. OMEPRAZOLE [Suspect]
     Active Substance: OMEPRAZOLE
     Dosage: 20 MG, BID
     Route: 048
  70. OMEPRAZOLE [Suspect]
     Active Substance: OMEPRAZOLE
     Dosage: 20 MG, BID
     Route: 048
  71. OMEPRAZOLE [Suspect]
     Active Substance: OMEPRAZOLE
     Dosage: 400 UG
     Route: 065
  72. OMEPRAZOLE [Suspect]
     Active Substance: OMEPRAZOLE
     Dosage: 12 MG, 2X/DAY
     Route: 003
  73. OMEPRAZOLE [Suspect]
     Active Substance: OMEPRAZOLE
     Dosage: UNK
  74. OMEPRAZOLE [Suspect]
     Active Substance: OMEPRAZOLE
     Dosage: 20 MG
     Route: 048
  75. DEXAMETHASONE [Suspect]
     Active Substance: DEXAMETHASONE
     Indication: Radiotherapy to pharynx
     Dosage: 8 MG, 1X/DAY
     Route: 048
  76. DEXAMETHASONE [Suspect]
     Active Substance: DEXAMETHASONE
     Indication: Radiotherapy
     Dosage: 8 MG, 1X/DAY
     Route: 048
     Dates: start: 20200521, end: 20200528
  77. DEXAMETHASONE [Suspect]
     Active Substance: DEXAMETHASONE
     Dosage: 8 MG, 1X/DAY
     Route: 048
     Dates: start: 20200528
  78. DEXAMETHASONE [Suspect]
     Active Substance: DEXAMETHASONE
     Dosage: 8 MG, 1X/DAY
     Route: 048
  79. DEXAMETHASONE [Suspect]
     Active Substance: DEXAMETHASONE
     Dosage: 2 MG, 1X/DAY
     Route: 048
     Dates: start: 20200528
  80. DEXAMETHASONE [Suspect]
     Active Substance: DEXAMETHASONE
     Dosage: 8 MG, 1X/DAY
     Route: 048
     Dates: start: 202005, end: 20200528
  81. DEXAMETHASONE [Suspect]
     Active Substance: DEXAMETHASONE
     Dosage: 8 MG, 1X/DAY
     Route: 048
     Dates: start: 20200515, end: 202005
  82. DEXAMETHASONE [Suspect]
     Active Substance: DEXAMETHASONE
     Dosage: 10 MG
     Route: 065
  83. DEXAMETHASONE [Suspect]
     Active Substance: DEXAMETHASONE
     Dosage: UNK
     Route: 048
     Dates: start: 202005
  84. DEXAMETHASONE [Suspect]
     Active Substance: DEXAMETHASONE
     Dosage: UNK
     Route: 048
  85. DEXAMETHASONE [Suspect]
     Active Substance: DEXAMETHASONE
     Dosage: 2 MG, 1X/DAY
     Route: 048
     Dates: start: 20200521, end: 20200528
  86. DEXAMETHASONE [Suspect]
     Active Substance: DEXAMETHASONE
     Dosage: 2 MG, 1X/DAY
     Route: 048
     Dates: start: 20200521, end: 20200528
  87. DEXAMETHASONE [Suspect]
     Active Substance: DEXAMETHASONE
     Dosage: 2 MG, 1X/DAY
     Route: 048
  88. DEXAMETHASONE [Suspect]
     Active Substance: DEXAMETHASONE
     Dosage: 10 MG
     Route: 065
  89. DEXAMETHASONE [Suspect]
     Active Substance: DEXAMETHASONE
     Dosage: UNK
     Route: 065
     Dates: start: 202005
  90. DEXAMETHASONE [Suspect]
     Active Substance: DEXAMETHASONE
     Dosage: 8 MG, 1X/DAY
     Route: 048
     Dates: start: 20200515, end: 202005
  91. DEXAMETHASONE [Suspect]
     Active Substance: DEXAMETHASONE
     Dosage: 8 MG, 1X/DAY
     Route: 048
     Dates: end: 20200528
  92. DEXAMETHASONE [Suspect]
     Active Substance: DEXAMETHASONE
     Dosage: 10 MG
     Route: 048
  93. DEXAMETHASONE [Suspect]
     Active Substance: DEXAMETHASONE
     Dosage: 26 MG
     Route: 065
  94. DEXAMETHASONE [Suspect]
     Active Substance: DEXAMETHASONE
     Dosage: 2 MG, 1X/DAY
     Route: 048
  95. DEXAMETHASONE [Suspect]
     Active Substance: DEXAMETHASONE
     Dosage: 8 MG 1X/DAY
     Route: 048
     Dates: start: 202005, end: 20200528
  96. DEXAMETHASONE [Suspect]
     Active Substance: DEXAMETHASONE
     Dosage: 2 MG, 1X/DAY
     Route: 048
  97. DEXAMETHASONE [Suspect]
     Active Substance: DEXAMETHASONE
     Dosage: 8 MG, 1X/DAY
     Route: 048
     Dates: start: 20200528, end: 20200528
  98. DEXAMETHASONE [Suspect]
     Active Substance: DEXAMETHASONE
     Dosage: 8 MG, 1X/DAY
     Route: 048
     Dates: start: 20200528, end: 20200528
  99. DEXAMETHASONE [Suspect]
     Active Substance: DEXAMETHASONE
     Dosage: UNK
  100. CARBOCYSTEINE [Suspect]
     Active Substance: CARBOCYSTEINE
     Indication: Rheumatoid arthritis
     Dosage: 750 MG, 1X/DAY
     Route: 065
  101. CARBOCYSTEINE [Suspect]
     Active Substance: CARBOCYSTEINE
     Dosage: 750 MG, 1X/DAY
     Route: 048
     Dates: start: 20100917
  102. CARBOCYSTEINE [Suspect]
     Active Substance: CARBOCYSTEINE
     Dosage: 750 MG, 1X/DAY
     Route: 065
  103. CARBOCYSTEINE [Suspect]
     Active Substance: CARBOCYSTEINE
     Dosage: 750 MG, 1X/DAY
     Route: 065
  104. CARBOCYSTEINE [Suspect]
     Active Substance: CARBOCYSTEINE
     Dosage: 750 MG, 1X/DAY
     Route: 065
  105. CARBAMAZEPINE [Suspect]
     Active Substance: CARBAMAZEPINE
     Dosage: 750 MG, 1X/DAY
     Route: 048
  106. VENLAFAXINE HYDROCHLORIDE [Suspect]
     Active Substance: VENLAFAXINE HYDROCHLORIDE
     Indication: Rheumatoid arthritis
     Dosage: 225 MG, 1X/DAY
     Route: 065
  107. VENLAFAXINE HYDROCHLORIDE [Suspect]
     Active Substance: VENLAFAXINE HYDROCHLORIDE
     Indication: Depression
     Dosage: UNK
     Route: 065
  108. VENLAFAXINE HYDROCHLORIDE [Suspect]
     Active Substance: VENLAFAXINE HYDROCHLORIDE
     Dosage: 225 MG, 1X/DAY
     Route: 065
  109. GUANIDINE [Suspect]
     Active Substance: GUANIDINE
     Dosage: 750 MG, 1X/DAY
     Route: 048
  110. ACTIVATED CHARCOAL [Suspect]
     Active Substance: ACTIVATED CHARCOAL
     Dosage: 750 MG
     Route: 065
  111. DITIOCARB [Suspect]
     Active Substance: DITIOCARB
     Indication: Abdominal discomfort
     Dosage: 750 MG
     Route: 065
  112. CIPROFLOXACIN [Suspect]
     Active Substance: CIPROFLOXACIN
     Indication: Rheumatoid arthritis
     Dosage: 1000 MG, UNK
     Route: 065
     Dates: start: 20100917
  113. CIPROFLOXACIN [Suspect]
     Active Substance: CIPROFLOXACIN
     Indication: Abdominal discomfort
     Dosage: 1000 MG, 1X/DAY
     Route: 048
     Dates: start: 20100917
  114. ZINC [Suspect]
     Active Substance: ZINC
     Indication: Abdominal discomfort
     Dosage: 750 MG, 1X/DAY
     Route: 065
  115. ZINC [Suspect]
     Active Substance: ZINC
     Indication: Depression
     Dosage: UNK
     Route: 065
  116. CLOZAPINE [Suspect]
     Active Substance: CLOZAPINE
     Indication: Schizophrenia
     Dosage: 400 MG
     Route: 048
     Dates: start: 20200403
  117. CLOZAPINE [Suspect]
     Active Substance: CLOZAPINE
     Dosage: 400 MG
     Route: 048
     Dates: start: 20090403
  118. CLOZAPINE [Suspect]
     Active Substance: CLOZAPINE
     Dosage: 8 MG, 1X/DAY
     Route: 048
     Dates: start: 20200521, end: 202005
  119. BENDROFLUMETHIAZIDE [Concomitant]
     Active Substance: BENDROFLUMETHIAZIDE
     Indication: Depression
     Dosage: UNK
     Route: 065
  120. BENDROFLUMETHIAZIDE [Concomitant]
     Active Substance: BENDROFLUMETHIAZIDE
     Indication: Pituitary tumour
     Dosage: UNK
     Route: 065
  121. CABERGOLINE [Concomitant]
     Active Substance: CABERGOLINE
     Indication: Empty sella syndrome
     Dosage: UNK
     Route: 065
  122. CABERGOLINE [Concomitant]
     Active Substance: CABERGOLINE
     Indication: Pituitary tumour
     Dosage: UNK
     Route: 065
  123. CETIRIZINE [Concomitant]
     Active Substance: CETIRIZINE HYDROCHLORIDE
     Indication: Abdominal discomfort
     Dosage: UNK
     Route: 065
  124. EZETIMIBE [Concomitant]
     Active Substance: EZETIMIBE
     Dosage: UNK
     Route: 065
  125. LEVOTHYROXINE [Concomitant]
     Active Substance: LEVOTHYROXINE
     Indication: Abdominal discomfort
     Dosage: UNK
     Route: 065
  126. ORUVAIL [Concomitant]
     Active Substance: KETOPROFEN
     Indication: Empty sella syndrome
     Dosage: UNK
     Route: 065
  127. KETOPROFEN [Concomitant]
     Active Substance: KETOPROFEN
     Indication: Empty sella syndrome
     Dosage: UNK
     Route: 065
  128. CHARCOAL ACTIVATED [Concomitant]
     Active Substance: ACTIVATED CHARCOAL
     Dosage: 750 MG
     Route: 065
  129. FOLIC ACID [Concomitant]
     Active Substance: FOLIC ACID
     Dosage: 5 MG
     Route: 048

REACTIONS (17)
  - Lung neoplasm malignant [Fatal]
  - Radiation inflammation [Fatal]
  - COVID-19 [Fatal]
  - Schizophrenia [Fatal]
  - Inflammation [Fatal]
  - Condition aggravated [Fatal]
  - Drug abuse [Unknown]
  - Product dose omission issue [Unknown]
  - Knee arthroplasty [Unknown]
  - Lower respiratory tract infection [Not Recovered/Not Resolved]
  - Abdominal discomfort [Unknown]
  - Rash [Unknown]
  - Arthropathy [Unknown]
  - Pulmonary pain [Unknown]
  - Intentional product misuse [Unknown]
  - Off label use [Unknown]
  - Overdose [Unknown]

NARRATIVE: CASE EVENT DATE: 20200401
